FAERS Safety Report 7865052-5 (Version None)
Quarter: 2011Q4

REPORT INFORMATION
  Report Type: 
  Country: None (occurrence: None)
  Receive Date: 20111028
  Receipt Date: 20101006
  Transmission Date: 20120403
  Serious: No
  Sender: FDA-Public Use
  Company Number: US-GLAXOSMITHKLINE-A0885240A

PATIENT
  Age: 66 Year
  Sex: Female

DRUGS (8)
  1. NAMENDA [Concomitant]
  2. CLONAZEPAM [Concomitant]
  3. VITAMIN D [Concomitant]
  4. ADVAIR DISKUS 100/50 [Suspect]
     Indication: CHRONIC OBSTRUCTIVE PULMONARY DISEASE
     Dosage: 1PUFF TWICE PER DAY
     Route: 055
     Dates: start: 20050901
  5. LOVASTATIN [Concomitant]
  6. CITALOPRAM HYDROBROMIDE [Concomitant]
  7. FOSAMAX [Concomitant]
  8. VITAMIN TAB [Concomitant]

REACTIONS (1)
  - DYSPHONIA [None]
